FAERS Safety Report 8570612-2 (Version None)
Quarter: 2012Q3

REPORT INFORMATION
  Report Type: 
  Country: None (occurrence: None)
  Receive Date: 20120804
  Receipt Date: 20120724
  Transmission Date: 20120928
  Serious: No
  Sender: FDA-Public Use
  Company Number: US-ASTRAZENECA-2012SE52322

PATIENT
  Age: 12 Year
  Sex: Female
  Weight: 37.6 kg

DRUGS (1)
  1. SYMBICORT [Suspect]
     Indication: ASTHMA
     Dosage: 160/4.5 MCG, UNKNOWN
     Route: 055

REACTIONS (2)
  - NASOPHARYNGITIS [None]
  - INTENTIONAL DRUG MISUSE [None]
